FAERS Safety Report 7635565-X (Version None)
Quarter: 2011Q3

REPORT INFORMATION
  Report Type: 
  Country: None (occurrence: None)
  Receive Date: 20110726
  Receipt Date: 20110715
  Transmission Date: 20111222
  Serious: Yes (Hospitalization)
  Sender: FDA-Public Use
  Company Number: US-JNJFOC-20110706920

PATIENT
  Sex: Male
  Weight: 53.7 kg

DRUGS (3)
  1. PREDNISONE [Suspect]
     Indication: PROSTATE CANCER METASTATIC
     Route: 065
  2. ABIRATERONE ACETATE [Suspect]
     Route: 048
  3. ABIRATERONE ACETATE [Suspect]
     Indication: PROSTATE CANCER METASTATIC
     Route: 048

REACTIONS (1)
  - FATIGUE [None]
